FAERS Safety Report 7044527-5 (Version None)
Quarter: 2010Q4

REPORT INFORMATION
  Report Type: 
  Country: None (occurrence: None)
  Receive Date: 20101014
  Receipt Date: 20100929
  Transmission Date: 20110411
  Serious: Yes (Hospitalization)
  Sender: FDA-Public Use
  Company Number: PHHY2010LB67894

PATIENT
  Sex: Male

DRUGS (2)
  1. EXJADE [Suspect]
     Indication: THALASSAEMIA BETA
     Dosage: 250 MG
     Route: 048
     Dates: start: 20100201
  2. EXJADE [Suspect]
     Dosage: 30 MG/KG

REACTIONS (2)
  - INFLUENZA LIKE ILLNESS [None]
  - PYREXIA [None]
